FAERS Safety Report 26035739 (Version 1)
Quarter: 2025Q4

REPORT INFORMATION
  Report Type: Spontaneous
  Country: US (occurrence: None)
  Receive Date: 20251108
  Receipt Date: 20251108
  Transmission Date: 20260118
  Serious: Yes (Death)
  Sender: FDA-CTU
  Company Number: None

PATIENT
  Sex: Female

DRUGS (1)
  1. GOHIBIC [Suspect]
     Active Substance: VILOBELIMAB
     Indication: COVID-19
     Dosage: OTHER FREQUENCY : DAY 1, 2,4,8,15,22;?
     Route: 041

REACTIONS (1)
  - Death [None]

NARRATIVE: CASE EVENT DATE: 20251102
